FAERS Safety Report 10844845 (Version 1)
Quarter: 2015Q1

REPORT INFORMATION
  Report Type: Spontaneous
  Country: US (occurrence: US)
  Receive Date: 20150220
  Receipt Date: 20150220
  Transmission Date: 20150721
  Serious: No
  Sender: FDA-Public Use
  Company Number: US-BAYER-2015-021040

PATIENT
  Age: 54 Year
  Sex: Female

DRUGS (1)
  1. GADAVIST [Suspect]
     Active Substance: GADOBUTROL
     Indication: NUCLEAR MAGNETIC RESONANCE IMAGING
     Dosage: 100 ML, ONCE
     Route: 042
     Dates: start: 20150203, end: 20150203

REACTIONS (2)
  - Off label use [None]
  - Erythema [None]

NARRATIVE: CASE EVENT DATE: 20150203
